FAERS Safety Report 23494151 (Version 2)
Quarter: 2024Q1

REPORT INFORMATION
  Report Type: Spontaneous
  Country: MA (occurrence: MA)
  Receive Date: 20240207
  Receipt Date: 20240212
  Transmission Date: 20240410
  Serious: Yes (Death, Life-Threatening, Hospitalization, Other)
  Sender: FDA-Public Use
  Company Number: MA-PFIZER INC-PV202400015779

PATIENT
  Age: 63 Year
  Sex: Female

DRUGS (1)
  1. GEMCITABINE HYDROCHLORIDE [Suspect]
     Active Substance: GEMCITABINE HYDROCHLORIDE
     Indication: Adenocarcinoma pancreas
     Dosage: 1000 MG/M2 ON DAY 1, DAY 8 AND DAY 21 CYCLE

REACTIONS (1)
  - Interstitial lung disease [Fatal]
